FAERS Safety Report 16684304 (Version 1)
Quarter: 2019Q3

REPORT INFORMATION
  Report Type: Spontaneous
  Country: GB (occurrence: GB)
  Receive Date: 20190808
  Receipt Date: 20190808
  Transmission Date: 20191004
  Serious: Yes (Other)
  Sender: FDA-Public Use
  Company Number: GB-TEVA-2019-GB-1089303

PATIENT
  Age: 79 Year
  Sex: Male
  Weight: 75 kg

DRUGS (39)
  1. DOCUSATE SODIUM. [Concomitant]
     Active Substance: DOCUSATE SODIUM
     Dosage: UP TO TWO TWICE DAILY
     Dates: start: 20171222, end: 20190625
  2. ACIDEX [Concomitant]
     Active Substance: CALCIUM CARBONATE\SODIUM ALGINATE\SODIUM BICARBONATE
     Dosage: 10 ML AFTER FOOD AND AT NIGHT AS REQUIRED
     Dates: start: 20050531, end: 20190625
  3. IRBESARTAN. [Concomitant]
     Active Substance: IRBESARTAN
     Dates: start: 20060728, end: 20190625
  4. PARACETAMOL [Concomitant]
     Active Substance: ACETAMINOPHEN
     Dosage: AS DIRECTED
     Dates: start: 20000719, end: 20190625
  5. AMLODIPINE [Concomitant]
     Active Substance: AMLODIPINE BESYLATE
     Dates: start: 20050524, end: 20190625
  6. CHLORAMPHENICOL [Concomitant]
     Active Substance: CHLORAMPHENICOL
     Dosage: IN THE AFFECTED EYE(S)
     Dates: start: 20190625
  7. LACIDIPINE [Concomitant]
     Active Substance: LACIDIPINE
     Dates: start: 20050803, end: 20190625
  8. NITROFURANTOIN. [Concomitant]
     Active Substance: NITROFURANTOIN
     Dates: start: 20190625
  9. RISPERIDONE. [Concomitant]
     Active Substance: RISPERIDONE
     Dosage: ONE TABLET EACH DAY AND ONE ADDITONAL TABLET WH...
     Dates: start: 20180717
  10. RANITIDINE. [Concomitant]
     Active Substance: RANITIDINE
     Dates: start: 19900326
  11. FLUCLOXACILLIN [Concomitant]
     Active Substance: FLUCLOXACILLIN
     Dates: start: 20190502, end: 20190531
  12. LOFEPRAMINE [Concomitant]
     Active Substance: LOFEPRAMINE
     Dates: start: 20000704, end: 20190625
  13. DEPO-MEDRONE [Concomitant]
     Active Substance: METHYLPREDNISOLONE
     Dosage: STAT
     Dates: start: 20070424, end: 20190625
  14. METFORMIN [Concomitant]
     Active Substance: METFORMIN HYDROCHLORIDE
     Dates: start: 20010910, end: 20190625
  15. HUMULIN M3 [Concomitant]
     Active Substance: INSULIN HUMAN
     Dosage: AS DIRECTED BY THE DIABETES CENTRE
     Dates: start: 20101026, end: 20190624
  16. CO-PROXAMOL [Concomitant]
     Active Substance: ACETAMINOPHEN\PROPOXYPHENE HYDROCHLORIDE
     Dosage: AS DIRECTED
     Dates: start: 20020816, end: 20190625
  17. DIHYDROCODEINE [Concomitant]
     Active Substance: DIHYDROCODEINE
     Dates: start: 20020213, end: 20190625
  18. BENDROFLUMETHIAZIDE [Concomitant]
     Active Substance: BENDROFLUMETHIAZIDE
     Dosage: IN THE MORNING
     Dates: start: 20031114, end: 20190625
  19. NISOLDIPINE. [Concomitant]
     Active Substance: NISOLDIPINE
     Dosage: IN THE MORNING
     Dates: start: 19970807, end: 20190625
  20. RAMIPRIL. [Suspect]
     Active Substance: RAMIPRIL
     Dosage: 2.5 MILLIGRAM DAILY;
     Dates: start: 20000316
  21. GABAPENTIN. [Concomitant]
     Active Substance: GABAPENTIN
     Dosage: AS DIRECTED
     Dates: start: 20071231, end: 20190625
  22. DOSULEPIN HYDROCHLORIDE [Concomitant]
     Active Substance: DOTHIEPIN HYDROCHLORIDE
     Dosage: AT NIGHT
     Dates: start: 19900525, end: 20190625
  23. AMITRIPTYLINE HYDROCHLORIDE. [Concomitant]
     Active Substance: AMITRIPTYLINE HYDROCHLORIDE
     Dosage: AT NIGHT
     Dates: start: 20040318, end: 20190625
  24. IBUPROFEN. [Concomitant]
     Active Substance: IBUPROFEN
     Dosage: APPLY UP TO THREE TIMES A DAY
     Dates: start: 20190405, end: 20190518
  25. TRIMETHOPRIM. [Concomitant]
     Active Substance: TRIMETHOPRIM
     Dates: start: 20190531, end: 20190601
  26. BEZALIP [Concomitant]
     Active Substance: BEZAFIBRATE
     Dosage: AT NIGHT
     Dates: start: 19940221, end: 20190625
  27. ATORVASTATIN [Concomitant]
     Active Substance: ATORVASTATIN
     Dosage: IN THE MORNING
     Dates: start: 20000614
  28. MORPHINE SULFATE. [Concomitant]
     Active Substance: MORPHINE SULFATE
     Indication: PAIN
     Dosage: 5MLS PRN FOR PAIN MAX 2 HOURLY
     Dates: start: 20160331, end: 20190625
  29. ATENOLOL. [Concomitant]
     Active Substance: ATENOLOL
     Dosage: IN THE MORNING
     Dates: start: 20000517
  30. RIVASTIGMINE. [Concomitant]
     Active Substance: RIVASTIGMINE
     Dates: start: 20171204
  31. FULTIUM-D3 [Concomitant]
     Active Substance: CHOLECALCIFEROL
     Dates: start: 20160208
  32. TRAMADOL. [Concomitant]
     Active Substance: TRAMADOL
     Dosage: TWO TO BE TAKEN FOUR TIMES A DAY AS REQUIRED
     Dates: start: 20020109, end: 20190625
  33. DOXAZOSIN [Concomitant]
     Active Substance: DOXAZOSIN MESYLATE
     Dosage: 1 DOSAGE FORMS DAILY; IN THE MORNING
     Dates: start: 20010606
  34. FOLIC ACID. [Concomitant]
     Active Substance: FOLIC ACID
     Dates: start: 20160814
  35. CODEINE PHOSPHATE [Concomitant]
     Active Substance: CODEINE PHOSPHATE
     Dosage: ONE OR TWO TO BE TAKEN AS REQUIRED
     Dates: start: 20000719, end: 20190625
  36. CANDESARTAN. [Concomitant]
     Active Substance: CANDESARTAN
     Dates: start: 20060928, end: 20190625
  37. HUMULIN L [Concomitant]
     Active Substance: INSULIN HUMAN
     Dosage: FOR SUBCUTANEOUS INJECTION, ACCORDING TO REQUIREMENTS
     Route: 058
     Dates: start: 20190625, end: 20190626
  38. DICLOFENAC DIETHYLAMINE [Concomitant]
     Active Substance: DICLOFENAC DIETHYLAMINE
     Dosage: APPLY THREE OR FOUR TIMES A DAY
     Dates: start: 20190501, end: 20190613
  39. CREON [Concomitant]
     Active Substance: PANCRELIPASE AMYLASE\PANCRELIPASE LIPASE\PANCRELIPASE PROTEASE
     Dosage: 2 WITH EACH MEAL
     Dates: start: 20160208

REACTIONS (1)
  - Drug intolerance [Unknown]

NARRATIVE: CASE EVENT DATE: 20190627
